FAERS Safety Report 6452988-5 (Version None)
Quarter: 2009Q4

REPORT INFORMATION
  Report Type: 
  Country: None (occurrence: None)
  Receive Date: 20091117
  Receipt Date: 20091106
  Transmission Date: 20100525
  Serious: Yes (Other)
  Sender: FDA-Public Use
  Company Number: AUR-APL-2009-01216

PATIENT
  Age: 44 Year
  Sex: Male
  Weight: 84 kg

DRUGS (5)
  1. SIMVASTATIN [Suspect]
     Dosage: 40MG, DAILY
     Dates: start: 20090601
  2. ATORVASTATIN CALCIUM [Suspect]
     Indication: ACUTE CORONARY SYNDROME
     Dosage: 80MG, DAILY
     Dates: start: 20090401
  3. ACETYLSALICYLIC LYSINE (KARDEGIC) [Concomitant]
  4. PLAVIX [Concomitant]
  5. ACID ACETYLSALICYLIC (ASPIRINS) [Concomitant]

REACTIONS (1)
  - EPISTAXIS [None]
